FAERS Safety Report 7762385-8 (Version None)
Quarter: 2011Q3

REPORT INFORMATION
  Report Type: 
  Country: None (occurrence: None)
  Receive Date: 20110920
  Receipt Date: 20110915
  Transmission Date: 20111222
  Serious: Yes (Life-Threatening, Hospitalization)
  Sender: FDA-Public Use
  Company Number: CA-NAPPMUNDI-DEU-2011-0007829

PATIENT
  Age: 16 Year
  Sex: Male

DRUGS (1)
  1. MS CONTIN [Suspect]
     Indication: PRODUCT USED FOR UNKNOWN INDICATION
     Dosage: 3000 MG, SINGLE
     Route: 048

REACTIONS (19)
  - OVERDOSE [None]
  - EPISTAXIS [None]
  - HEART RATE INCREASED [None]
  - RESPIRATORY DISTRESS [None]
  - PULMONARY OEDEMA [None]
  - AGITATION [None]
  - PNEUMONIA ASPIRATION [None]
  - HAEMOGLOBIN DECREASED [None]
  - STRIDOR [None]
  - NO THERAPEUTIC RESPONSE [None]
  - UNRESPONSIVE TO STIMULI [None]
  - PNEUMOTHORAX [None]
  - STATUS ASTHMATICUS [None]
  - WHITE BLOOD CELL COUNT INCREASED [None]
  - PULMONARY HAEMORRHAGE [None]
  - HYPOTENSION [None]
  - BLOOD PH DECREASED [None]
  - PLEURAL EFFUSION [None]
  - EMPHYSEMA [None]
